FAERS Safety Report 24438434 (Version 6)
Quarter: 2024Q4

REPORT INFORMATION
  Report Type: Spontaneous
  Country: US (occurrence: US)
  Receive Date: 20241015
  Receipt Date: 20241216
  Transmission Date: 20250114
  Serious: No
  Sender: PFIZER
  Company Number: US-PFIZER INC-202400275748

PATIENT
  Age: 70 Year
  Sex: Female
  Weight: 92.517 kg

DRUGS (1)
  1. IBRANCE [Suspect]
     Active Substance: PALBOCICLIB
     Indication: Breast cancer female
     Dosage: 125 MG, CYCLIC, (ONCE DAILY FOR 1-21 DAYS ON, 7 DAYS OFF)
     Route: 048
     Dates: start: 20221209

REACTIONS (1)
  - Blood glucose abnormal [Recovering/Resolving]

NARRATIVE: CASE EVENT DATE: 20231104
